FAERS Safety Report 14085401 (Version 1)
Quarter: 2017Q4

REPORT INFORMATION
  Report Type: Spontaneous
  Country: FR (occurrence: FR)
  Receive Date: 20171013
  Receipt Date: 20171013
  Transmission Date: 20180321
  Serious: Yes (Death, Life-Threatening)
  Sender: FDA-Public Use
  Company Number: FR-ROCHE-2006148

PATIENT
  Age: 78 Year
  Sex: Male

DRUGS (14)
  1. CORTANCYL [Concomitant]
     Active Substance: PREDNISONE
     Route: 065
  2. PANTOPRAZOLE [Concomitant]
     Active Substance: PANTOPRAZOLE
  3. PREVISCAN (FRANCE) [Concomitant]
     Active Substance: FLUINDIONE
  4. MABTHERA [Suspect]
     Active Substance: RITUXIMAB
     Indication: CRYOGLOBULINAEMIA
     Dosage: CONCENTRATE FOR SOLUTION FOR DIFFUSION
     Route: 042
     Dates: start: 20170829, end: 20170829
  5. COVERAM [Concomitant]
     Active Substance: AMLODIPINE\PERINDOPRIL
  6. INEXIUM [Concomitant]
     Active Substance: ESOMEPRAZOLE
  7. COLCHICINE. [Concomitant]
     Active Substance: COLCHICINE
  8. CARVEDILOL. [Concomitant]
     Active Substance: CARVEDILOL
     Route: 065
  9. CLOPIDOGREL [Concomitant]
     Active Substance: CLOPIDOGREL BISULFATE
  10. LANTUS [Concomitant]
     Active Substance: INSULIN GLARGINE
  11. OROZAMUDOL [Concomitant]
     Active Substance: TRAMADOL
  12. VALACYCLOVIR [Concomitant]
     Active Substance: VALACYCLOVIR HYDROCHLORIDE
  13. AMLODIPINE [Concomitant]
     Active Substance: AMLODIPINE BESYLATE
     Route: 065
  14. FUROSEMIDE. [Concomitant]
     Active Substance: FUROSEMIDE
     Route: 065

REACTIONS (4)
  - Acute pulmonary oedema [Recovered/Resolved]
  - Intentional product use issue [Unknown]
  - Off label use [Unknown]
  - Cardiac failure [Not Recovered/Not Resolved]

NARRATIVE: CASE EVENT DATE: 20170831
